FAERS Safety Report 7665198-0 (Version None)
Quarter: 2011Q3

REPORT INFORMATION
  Report Type: 
  Country: None (occurrence: None)
  Receive Date: 20110806
  Receipt Date: 20110311
  Transmission Date: 20111222
  Serious: No
  Sender: FDA-Public Use
  Company Number: US-ABBOTT-11P-163-0711190-00

PATIENT
  Age: 65 Year
  Sex: Male
  Weight: 97.61 kg

DRUGS (4)
  1. NIASPAN [Suspect]
     Indication: BLOOD CHOLESTEROL INCREASED
     Dates: start: 20110309
  2. TRICOR [Concomitant]
     Indication: BLOOD CHOLESTEROL INCREASED
  3. OMEPRAZOLE [Concomitant]
     Indication: FLATULENCE
  4. MICARDIS [Concomitant]
     Indication: HYPERTENSION

REACTIONS (3)
  - FLUSHING [None]
  - PRURITUS [None]
  - ERYTHEMA [None]
